FAERS Safety Report 17250758 (Version 1)
Quarter: 2020Q1

REPORT INFORMATION
  Report Type: Spontaneous
  Country: CA (occurrence: CA)
  Receive Date: 20200109
  Receipt Date: 20200109
  Transmission Date: 20200409
  Serious: Yes (Hospitalization)
  Sender: FDA-Public Use
  Company Number: CA-TEVA-2020-CA-1165589

PATIENT
  Age: 4 Year
  Sex: Female
  Weight: 15 kg

DRUGS (9)
  1. VINCRISTINE SULFATE. [Concomitant]
     Active Substance: VINCRISTINE SULFATE
     Route: 042
  2. METHYLPREDNISOLONE. [Concomitant]
     Active Substance: METHYLPREDNISOLONE
  3. PEG/L-ASPARAGINASE [Concomitant]
     Active Substance: PEGASPARGASE
  4. METHOTREXATE. [Suspect]
     Active Substance: METHOTREXATE
     Dosage: 1.7143 MILLIGRAM DAILY;
     Route: 037
  5. PREDNISONE. [Concomitant]
     Active Substance: PREDNISONE
  6. METHOTREXATE. [Suspect]
     Active Substance: METHOTREXATE
     Indication: PRODUCT USED FOR UNKNOWN INDICATION
     Route: 030
  7. DOXORUBICIN HYDROCHLORIDE. [Concomitant]
     Active Substance: DOXORUBICIN HYDROCHLORIDE
  8. METHOTREXATE. [Suspect]
     Active Substance: METHOTREXATE
     Route: 042
  9. CYTARABINE. [Concomitant]
     Active Substance: CYTARABINE

REACTIONS (4)
  - Ulcer [Unknown]
  - Decreased appetite [Unknown]
  - Mucosal inflammation [Unknown]
  - Oropharyngeal plaque [Unknown]
